FAERS Safety Report 9685268 (Version 2)
Quarter: 2013Q4

REPORT INFORMATION
  Report Type: Spontaneous
  Country: JP (occurrence: JP)
  Receive Date: 20131113
  Receipt Date: 20131113
  Transmission Date: 20140711
  Serious: Yes (Hospitalization, Disabling, Other)
  Sender: FDA-Public Use
  Company Number: JP-TAKEDA-0239619

PATIENT
  Age: 74 Year
  Sex: Female

DRUGS (6)
  1. TACHOSIL [Suspect]
     Indication: HAEMOSTASIS
     Dosage: 5 DF, UNK
     Route: 050
     Dates: start: 20130403, end: 20130403
  2. RED BLOOD CELL CONCENTRATE [Concomitant]
  3. PLATELET CONCENTRATE [Concomitant]
  4. FROZEN PLASMA [Concomitant]
  5. PLASMA DERIVED PRODUCT [Concomitant]
  6. SURGICEL [Concomitant]
     Indication: HAEMOSTASIS
     Dosage: UNK
     Dates: start: 20130403, end: 20130403

REACTIONS (1)
  - Cardiac tamponade [Recovered/Resolved]
